FAERS Safety Report 5044671-8 (Version None)
Quarter: 2006Q3

REPORT INFORMATION
  Report Type: 
  Country: None (occurrence: None)
  Receive Date: 20060706
  Receipt Date: 20060630
  Transmission Date: 20061208
  Serious: Yes (Hospitalization)
  Sender: FDA-Public Use
  Company Number: US-BOEHRINGER INGELHEIM PHARMACEUTICALS, INC.-2006-BP-07598BP

PATIENT
  Sex: Female

DRUGS (5)
  1. COMBIVENT [Suspect]
     Indication: CHRONIC OBSTRUCTIVE PULMONARY DISEASE
     Route: 055
     Dates: start: 20030101, end: 20060301
  2. COMBIVENT [Suspect]
     Indication: EMPHYSEMA
     Route: 055
     Dates: start: 20060301, end: 20060618
  3. SPIRIVA [Suspect]
     Indication: CHRONIC OBSTRUCTIVE PULMONARY DISEASE
     Route: 055
     Dates: start: 20060618
  4. ALBUTEROL SPIROS [Concomitant]
     Route: 055
     Dates: start: 20060618
  5. ZYRTEC [Concomitant]
     Route: 048
     Dates: start: 20060618

REACTIONS (4)
  - DYSPNOEA [None]
  - FALL [None]
  - HIP FRACTURE [None]
  - PNEUMONIA [None]
